FAERS Safety Report 16388332 (Version 2)
Quarter: 2019Q2

REPORT INFORMATION
  Report Type: Spontaneous
  Country: US (occurrence: US)
  Receive Date: 20190604
  Receipt Date: 20190619
  Transmission Date: 20190711
  Serious: Yes (Hospitalization)
  Sender: FDA-Public Use
  Company Number: US-PFIZER INC-2019232613

PATIENT
  Age: 72 Year
  Sex: Male
  Weight: 63.5 kg

DRUGS (1)
  1. LYRICA [Suspect]
     Active Substance: PREGABALIN
     Indication: NEUROPATHY PERIPHERAL
     Dosage: 75 MG, THREE TIMES DAILY
     Route: 048
     Dates: start: 201905, end: 201905

REACTIONS (4)
  - Asthenia [Recovering/Resolving]
  - Contraindicated product administered [Unknown]
  - Product use in unapproved indication [Unknown]
  - Off label use [Unknown]

NARRATIVE: CASE EVENT DATE: 201905
